FAERS Safety Report 13517584 (Version 1)
Quarter: 2017Q2

REPORT INFORMATION
  Report Type: Spontaneous
  Country: DE (occurrence: DE)
  Receive Date: 20170505
  Receipt Date: 20170505
  Transmission Date: 20170830
  Serious: Yes (Other)
  Sender: FDA-Public Use
  Company Number: DE-TEVA-764004GER

PATIENT
  Sex: Male

DRUGS (2)
  1. AMLODIPIN 1A PHARMA 5 MG [Suspect]
     Active Substance: AMLODIPINE BESYLATE
  2. SIMVASTATIN 80 MG [Suspect]
     Active Substance: SIMVASTATIN

REACTIONS (4)
  - Bradycardia [Unknown]
  - Extrasystoles [Unknown]
  - Cardiac disorder [Unknown]
  - Arrhythmia [Unknown]
